FAERS Safety Report 7796184-8 (Version None)
Quarter: 2011Q4

REPORT INFORMATION
  Report Type: 
  Country: None (occurrence: None)
  Receive Date: 20111004
  Receipt Date: 20110919
  Transmission Date: 20120403
  Serious: Yes (Other)
  Sender: FDA-Public Use
  Company Number: US-WATSON-2011-15758

PATIENT
  Age: 42 Year
  Sex: Female

DRUGS (1)
  1. FIORICET [Suspect]
     Indication: MIGRAINE
     Dosage: UNKNOWN
     Route: 065

REACTIONS (4)
  - HALLUCINATION [None]
  - INSOMNIA [None]
  - WITHDRAWAL SYNDROME [None]
  - AGITATION [None]
